FAERS Safety Report 9556637 (Version 1)
Quarter: 2013Q3

REPORT INFORMATION
  Report Type: Spontaneous
  Country: US (occurrence: None)
  Receive Date: 20130724
  Receipt Date: 20130724
  Transmission Date: 20140515
  Serious: Yes (Other)
  Sender: FDA-Public Use
  Company Number: PHEH2013US007625

PATIENT
  Age: 62 Year
  Sex: Female
  Weight: 96.1 kg

DRUGS (2)
  1. GILENYA [Suspect]
     Indication: MULTIPLE SCLEROSIS
     Route: 048
     Dates: start: 20121203
  2. PREDNISONE (PREDNISONE) [Concomitant]

REACTIONS (3)
  - Hot flush [None]
  - Insomnia [None]
  - Hyperhidrosis [None]
